FAERS Safety Report 13797727 (Version 2)
Quarter: 2017Q3

REPORT INFORMATION
  Report Type: Spontaneous
  Country: SE (occurrence: SE)
  Receive Date: 20170727
  Receipt Date: 20170914
  Transmission Date: 20171127
  Serious: Yes (Other)
  Sender: FDA-Public Use
  Company Number: SE-KADMON PHARMACEUTICALS, LLC-KAD-201707-00795

PATIENT
  Age: 67 Year
  Sex: Female

DRUGS (5)
  1. TROMBYL 75 MG [Concomitant]
     Dosage: TABLET
  2. VIEKIRAX [Suspect]
     Active Substance: OMBITASVIR\PARITAPREVIR\RITONAVIR
     Indication: CHRONIC HEPATITIS C
     Dosage: FILM-COATED TABLET; 12.5 MG/75 MG/50 MG
     Route: 048
     Dates: start: 20170608, end: 20170711
  3. EXVIERA 250 MG [Suspect]
     Active Substance: DASABUVIR
     Indication: CHRONIC HEPATITIS C
     Dosage: FILM-COATED TABLET
     Route: 048
     Dates: start: 20170608, end: 20170711
  4. RIBAVIRIN. [Suspect]
     Active Substance: RIBAVIRIN
     Dosage: FILM-COATED TABLET
     Route: 048
  5. MAROZID (HYZAAR) [Concomitant]
     Dosage: FILM-COATED TABLET

REACTIONS (5)
  - Alanine aminotransferase increased [Recovered/Resolved]
  - Aspartate aminotransferase increased [Recovered/Resolved]
  - Transaminases increased [Recovered/Resolved]
  - Blood bilirubin increased [Recovered/Resolved]
  - Anaemia [Recovered/Resolved]

NARRATIVE: CASE EVENT DATE: 20170621
